FAERS Safety Report 19084424 (Version 1)
Quarter: 2021Q2

REPORT INFORMATION
  Report Type: Spontaneous
  Country: US (occurrence: US)
  Receive Date: 20210401
  Receipt Date: 20210401
  Transmission Date: 20210717
  Serious: Yes (Hospitalization, Other)
  Sender: FDA-Public Use
  Company Number: US-ABBVIE-21K-163-3819271-00

PATIENT

DRUGS (2)
  1. IMBRUVICA [Interacting]
     Active Substance: IBRUTINIB
     Indication: CHRONIC LYMPHOCYTIC LEUKAEMIA
     Route: 048
     Dates: start: 201403, end: 201906
  2. IMBRUVICA [Suspect]
     Active Substance: IBRUTINIB
     Indication: CHRONIC LYMPHOCYTIC LEUKAEMIA
     Dosage: MONOTHERAPY IN FIRST LINE
     Route: 048
     Dates: start: 201403, end: 201906

REACTIONS (27)
  - Hypertension [Unknown]
  - Arthralgia [Unknown]
  - Infection [Unknown]
  - Skin disorder [Unknown]
  - Gastroenteritis [Unknown]
  - Atrial fibrillation [Unknown]
  - Drug interaction [Unknown]
  - Night sweats [Unknown]
  - Mucosal inflammation [Unknown]
  - Gastrointestinal disorder [Unknown]
  - Adverse event [Unknown]
  - Musculoskeletal pain [Unknown]
  - Lymphadenopathy [Unknown]
  - Liver function test increased [Unknown]
  - Hospitalisation [Unknown]
  - Fatigue [Unknown]
  - Splenomegaly [Unknown]
  - Myalgia [Unknown]
  - Gait inability [Unknown]
  - Decreased appetite [Unknown]
  - Acute kidney injury [Unknown]
  - Blood disorder [Unknown]
  - Nervous system disorder [Unknown]
  - General physical health deterioration [Unknown]
  - Dysphagia [Unknown]
  - Contusion [Unknown]
  - Rash [Unknown]
